FAERS Safety Report 8933497 (Version 2)
Quarter: 2012Q4

REPORT INFORMATION
  Report Type: 
  Country: US (occurrence: US)
  Receive Date: 20121129
  Receipt Date: 20121227
  Transmission Date: 20130627
  Serious: Yes (Other)
  Sender: FDA-Public Use
  Company Number: US-JNJFOC-20121112854

PATIENT
  Sex: Female

DRUGS (1)
  1. NUCYNTA ER [Suspect]
     Indication: PRODUCT USED FOR UNKNOWN INDICATION
     Dosage: twice a day
     Route: 048

REACTIONS (2)
  - Unresponsive to stimuli [Not Recovered/Not Resolved]
  - Adverse drug reaction [Unknown]
